FAERS Safety Report 17036335 (Version 1)
Quarter: 2019Q4

REPORT INFORMATION
  Report Type: Spontaneous
  Country: US (occurrence: US)
  Receive Date: 20191115
  Receipt Date: 20191115
  Transmission Date: 20200122
  Serious: No
  Sender: FDA-Public Use
  Company Number: NVSC2019US032427

PATIENT
  Sex: Female

DRUGS (2)
  1. METHOTREXATE. [Suspect]
     Active Substance: METHOTREXATE
     Indication: ECTOPIC PREGNANCY
     Dosage: 1 MG/KG ON 1,3, 5 AND 7 DAYS
     Route: 030
  2. CITROVORUM FACTOR [Suspect]
     Active Substance: LEUCOVORIN
     Indication: ECTOPIC PREGNANCY
     Dosage: 0.1 MG/KG, ON 2, 4, 6 AND 8 DAYS
     Route: 030

REACTIONS (2)
  - Product use in unapproved indication [Unknown]
  - Stomatitis [Unknown]
